FAERS Safety Report 10248178 (Version 2)
Quarter: 2014Q2

REPORT INFORMATION
  Report Type: Spontaneous
  Country: AM (occurrence: AM)
  Receive Date: 20140620
  Receipt Date: 20140620
  Transmission Date: 20141212
  Serious: Yes (Other)
  Sender: FDA-Public Use
  Company Number: PHHY2014AM070401

PATIENT
  Sex: Female

DRUGS (2)
  1. METHYLPREDNISOLONE [Suspect]
     Indication: INFANTILE SPASMS
     Dosage: 32 MG
  2. METHYLPREDNISOLONE [Suspect]
     Dosage: 48 MG, UNK

REACTIONS (7)
  - Dyskinesia [Recovered/Resolved]
  - Strabismus [Recovered/Resolved]
  - Movement disorder [Recovered/Resolved]
  - Grimacing [Unknown]
  - Hypotonia [Recovered/Resolved]
  - Ataxia [Recovered/Resolved]
  - Cushingoid [Unknown]
